FAERS Safety Report 8603340-5 (Version None)
Quarter: 2012Q3

REPORT INFORMATION
  Report Type: 
  Country: None (occurrence: None)
  Receive Date: 20120817
  Receipt Date: 20120809
  Transmission Date: 20120928
  Serious: Yes (Other)
  Sender: FDA-Public Use
  Company Number: KR-B.I. PHARMACEUTICALS,INC./RIDGEFIELD-2012-BP-19621YA

PATIENT
  Sex: Male

DRUGS (3)
  1. GASTROINTESTINAL MEDICINE (DIASTASE) [Concomitant]
  2. TAMSULOSIN HCL [Suspect]
     Route: 048
     Dates: start: 20120806
  3. ANTIDEPRESSANTS [Concomitant]

REACTIONS (1)
  - QUADRIPLEGIA [None]
